FAERS Safety Report 16877293 (Version 1)
Quarter: 2019Q4

REPORT INFORMATION
  Report Type: Report from Study
  Country: CN (occurrence: CN)
  Receive Date: 20191002
  Receipt Date: 20191002
  Transmission Date: 20200122
  Serious: Yes (Other)
  Sender: FDA-Public Use
  Company Number: CN-ROCHE-2416225

PATIENT

DRUGS (6)
  1. TRASTUZUMAB. [Suspect]
     Active Substance: TRASTUZUMAB
     Indication: HER-2 POSITIVE BREAST CANCER
     Route: 065
  2. FLUOROURACIL. [Suspect]
     Active Substance: FLUOROURACIL
     Indication: HER-2 POSITIVE BREAST CANCER
     Route: 065
  3. FLUOROURACIL. [Suspect]
     Active Substance: FLUOROURACIL
     Indication: HER-2 POSITIVE GASTRIC CANCER
  4. TRASTUZUMAB. [Suspect]
     Active Substance: TRASTUZUMAB
     Indication: HER-2 POSITIVE GASTRIC CANCER
  5. TRASTUZUMAB. [Suspect]
     Active Substance: TRASTUZUMAB
     Indication: OESOPHAGEAL ADENOCARCINOMA
  6. FLUOROURACIL. [Suspect]
     Active Substance: FLUOROURACIL
     Indication: OESOPHAGEAL ADENOCARCINOMA

REACTIONS (16)
  - Right atrial enlargement [Recovered/Resolved]
  - Aortic valve incompetence [Recovered/Resolved]
  - Ejection fraction decreased [Recovered/Resolved]
  - Pericardial effusion [Recovered/Resolved]
  - Sinus bradycardia [Recovered/Resolved]
  - Tricuspid valve incompetence [Unknown]
  - Pulmonary arterial pressure increased [Recovered/Resolved]
  - Left atrial enlargement [Recovered/Resolved]
  - Electrocardiogram QT prolonged [Unknown]
  - Mitral valve incompetence [Unknown]
  - Supraventricular extrasystoles [Recovered/Resolved]
  - Left ventricular enlargement [Recovered/Resolved]
  - Sinus tachycardia [Recovered/Resolved]
  - Pulmonary hypertension [Recovered/Resolved]
  - Atrioventricular block [Recovered/Resolved]
  - Left ventricular dysfunction [Recovered/Resolved]
